FAERS Safety Report 6179656-1 (Version None)
Quarter: 2009Q2

REPORT INFORMATION
  Report Type: 
  Country: None (occurrence: None)
  Receive Date: 20090505
  Receipt Date: 20090424
  Transmission Date: 20091009
  Serious: Yes (Other)
  Sender: FDA-Public Use
  Company Number: PHHY2009JP05062

PATIENT
  Sex: Female

DRUGS (7)
  1. COMTAN [Suspect]
     Indication: DRUG EFFECT DECREASED
     Dosage: 600 MG/DAY
     Route: 048
     Dates: start: 20070606, end: 20070717
  2. COMTAN [Suspect]
     Indication: PARKINSON'S DISEASE
     Dosage: 500 MG/DAY
     Route: 048
     Dates: start: 20070718, end: 20070731
  3. COMTAN [Suspect]
     Dosage: 400 MG/DAY
     Route: 048
     Dates: start: 20070801
  4. MENESIT [Suspect]
     Indication: PARKINSON'S DISEASE
     Dosage: 600 MG/ DAY
     Route: 048
     Dates: start: 20040902, end: 20070731
  5. MENESIT [Suspect]
     Dosage: 400 MG/DAY
     Route: 048
     Dates: start: 20070801
  6. REQUIP [Concomitant]
     Dosage: 9 MG
     Route: 048
  7. SELEGILINE HCL [Concomitant]
     Dosage: 5 MG, UNK
     Route: 048

REACTIONS (3)
  - DOPAMINE DYSREGULATION SYNDROME [None]
  - LOGORRHOEA [None]
  - PORIOMANIA [None]
